FAERS Safety Report 7331756-6 (Version None)
Quarter: 2011Q1

REPORT INFORMATION
  Report Type: 
  Country: None (occurrence: None)
  Receive Date: 20110304
  Receipt Date: 20110224
  Transmission Date: 20110831
  Serious: Yes (Other)
  Sender: FDA-Public Use
  Company Number: FR-JNJFOC-20110208441

PATIENT
  Age: 44 Year
  Sex: Female

DRUGS (7)
  1. LITHIUM [Concomitant]
     Route: 065
  2. TOPIRAMATE [Suspect]
     Dosage: PROGRESSIVE DOSES
     Route: 048
     Dates: start: 20080201, end: 20091101
  3. MANGANESE [Concomitant]
     Route: 065
  4. COBALT [Concomitant]
     Route: 065
  5. PROPRANOLOL [Concomitant]
     Route: 065
  6. TOPIRAMATE [Suspect]
     Indication: MIGRAINE PROPHYLAXIS
     Route: 048
     Dates: start: 20080201, end: 20091101
  7. GESTODENE AND ETHINYL ESTRADIOL [Concomitant]
     Route: 065

REACTIONS (1)
  - GRANULOMA ANNULARE [None]
